FAERS Safety Report 16057793 (Version 1)
Quarter: 2019Q1

REPORT INFORMATION
  Report Type: Report from Study
  Country: ES (occurrence: ES)
  Receive Date: 20190311
  Receipt Date: 20190311
  Transmission Date: 20190418
  Serious: Yes (Other)
  Sender: FDA-Public Use
  Company Number: ES-TEVA-2019-ES-1022686

PATIENT
  Age: 37 Year
  Sex: Female

DRUGS (6)
  1. COPAXONE [Suspect]
     Active Substance: GLATIRAMER ACETATE
     Indication: RELAPSING-REMITTING MULTIPLE SCLEROSIS
     Route: 058
     Dates: start: 201507
  2. PAROXETINE. [Concomitant]
     Active Substance: PAROXETINE
     Indication: ILL-DEFINED DISORDER
     Route: 048
     Dates: start: 20090526
  3. RANITINA [Concomitant]
     Indication: PROPHYLAXIS
     Route: 048
     Dates: start: 20180801
  4. LEVOTHYROXIN [Concomitant]
     Active Substance: LEVOTHYROXINE
     Indication: ILL-DEFINED DISORDER
     Route: 048
     Dates: start: 20140327
  5. PATOPROAZOL [Concomitant]
     Indication: PROPHYLAXIS
     Route: 048
     Dates: start: 20101209, end: 2017
  6. CLONAZEPAM. [Concomitant]
     Active Substance: CLONAZEPAM
     Indication: ILL-DEFINED DISORDER
     Route: 048
     Dates: start: 20160701

REACTIONS (1)
  - Lipodystrophy acquired [Not Recovered/Not Resolved]

NARRATIVE: CASE EVENT DATE: 20180627
